FAERS Safety Report 11363886 (Version 1)
Quarter: 2015Q3

REPORT INFORMATION
  Report Type: Spontaneous
  Country: US (occurrence: None)
  Receive Date: 20150810
  Receipt Date: 20150810
  Transmission Date: 20151125
  Serious: Yes (Other)
  Sender: FDA-Public Use
  Company Number: None

PATIENT
  Age: 40 Year
  Sex: Female
  Weight: 68.04 kg

DRUGS (5)
  1. METOPROLOL [Concomitant]
     Active Substance: METOPROLOL
  2. BIOTIN [Concomitant]
     Active Substance: BIOTIN
  3. ADVANCE WHITE EXTREME WHITENING TARTAR CONTROL [Suspect]
     Active Substance: SODIUM FLUORIDE
     Indication: TOOTH DISCOLOURATION
     Dates: start: 20150805
  4. CENTRUM MULTIVITAMINS [Concomitant]
     Active Substance: VITAMINS
  5. OMEPRAZOLE. [Concomitant]
     Active Substance: OMEPRAZOLE

REACTIONS (8)
  - Cheilitis [None]
  - Rash [None]
  - Oral mucosal eruption [None]
  - Oral pain [None]
  - Lip swelling [None]
  - Oral discomfort [None]
  - Angular cheilitis [None]
  - Glossodynia [None]

NARRATIVE: CASE EVENT DATE: 20150805
